FAERS Safety Report 14952963 (Version 1)
Quarter: 2018Q2

REPORT INFORMATION
  Report Type: Spontaneous
  Country: JP (occurrence: JP)
  Receive Date: 20180530
  Receipt Date: 20180530
  Transmission Date: 20180711
  Serious: Yes (Other)
  Sender: FDA-Public Use
  Company Number: JP-BAYER-2018-097444

PATIENT
  Age: 88 Year
  Sex: Female

DRUGS (6)
  1. PRAZOSIN HYDROCHLORIDE. [Concomitant]
     Active Substance: PRAZOSIN HYDROCHLORIDE
     Dosage: 3.75MG, UNK
     Dates: start: 20170914
  2. PITAVASTATIN CALCIUM [Concomitant]
     Active Substance: PITAVASTATIN CALCIUM
     Dosage: 1MG, UNK
  3. AMLODIPINE [Concomitant]
     Active Substance: AMLODIPINE BESYLATE
     Dosage: 2.5MG, UNK
  4. BAYASPIRIN 100 MG [Suspect]
     Active Substance: ASPIRIN
     Indication: CATHETER PLACEMENT
     Dosage: 100 MG, QD
     Route: 048
     Dates: start: 20170914
  5. LANSOPRAZOLE. [Concomitant]
     Active Substance: LANSOPRAZOLE
     Dosage: 15MG. UNK
  6. VALSARTAN. [Concomitant]
     Active Substance: VALSARTAN
     Dosage: 40MG, UNK

REACTIONS (1)
  - Deafness [None]

NARRATIVE: CASE EVENT DATE: 20171213
